FAERS Safety Report 13955047 (Version 1)
Quarter: 2017Q3

REPORT INFORMATION
  Report Type: Spontaneous
  Country: US (occurrence: US)
  Receive Date: 20170911
  Receipt Date: 20170911
  Transmission Date: 20171128
  Serious: No
  Sender: FDA-Public Use
  Company Number: US-BRAINTREE LABORATORIES-170343

PATIENT
  Age: 29 Year
  Sex: Male
  Weight: 88.45 kg

DRUGS (1)
  1. SUPREP BOWEL PREP [Suspect]
     Active Substance: MAGNESIUM SULFATE\POTASSIUM SULFATE\SODIUM SULFATE
     Indication: COLONOSCOPY
     Dosage: 1 X 6 OZ. BOTTLE
     Route: 048
     Dates: start: 20170608, end: 20170608

REACTIONS (8)
  - Fall [None]
  - Underdose [None]
  - Drug ineffective [None]
  - Hyperhidrosis [None]
  - Abdominal pain upper [None]
  - Vitreous floaters [None]
  - Dizziness [None]
  - Nausea [None]

NARRATIVE: CASE EVENT DATE: 20170608
